FAERS Safety Report 17876479 (Version 1)
Quarter: 2020Q2

REPORT INFORMATION
  Report Type: Spontaneous
  Country: CN (occurrence: CN)
  Receive Date: 20200609
  Receipt Date: 20200609
  Transmission Date: 20200714
  Serious: Yes (Death, Other)
  Sender: FDA-Public Use
  Company Number: CN-MACLEODS PHARMACEUTICALS US LTD-MAC2020025954

PATIENT

DRUGS (8)
  1. ASPIRIN. [Suspect]
     Active Substance: ASPIRIN
     Dosage: 100 MILLIGRAM, QD
     Route: 048
  2. CLOPIDOGREL [Suspect]
     Active Substance: CLOPIDOGREL BISULFATE
     Indication: ANTIPLATELET THERAPY
     Dosage: 75 MILLIGRAM, QD
     Route: 048
     Dates: start: 2017
  3. CINACALCET. [Concomitant]
     Active Substance: CINACALCET
     Indication: BLOOD PARATHYROID HORMONE INCREASED
  4. ASPIRIN. [Suspect]
     Active Substance: ASPIRIN
     Indication: ANTIPLATELET THERAPY
     Dosage: 200 MILLIGRAM, PER EVERY OTHER DAY
     Route: 048
     Dates: start: 2017
  5. CINACALCET. [Concomitant]
     Active Substance: CINACALCET
     Indication: BLOOD PHOSPHORUS INCREASED
     Route: 065
  6. LANTHANUM CARBONATE. [Concomitant]
     Active Substance: LANTHANUM CARBONATE
     Indication: BLOOD PARATHYROID HORMONE INCREASED
  7. BERAPROST SODIUM [Concomitant]
     Active Substance: BERAPROST SODIUM
     Indication: PRODUCT USED FOR UNKNOWN INDICATION
     Dosage: 40 MICROGRAM, TID
     Route: 048
  8. LANTHANUM CARBONATE. [Concomitant]
     Active Substance: LANTHANUM CARBONATE
     Indication: BLOOD PHOSPHORUS INCREASED
     Dosage: UNK
     Route: 065

REACTIONS (3)
  - Abdominal discomfort [Recovered/Resolved]
  - Acute myocardial infarction [Fatal]
  - Treatment noncompliance [Recovered/Resolved]

NARRATIVE: CASE EVENT DATE: 2017
